FAERS Safety Report 7066327 (Version 22)
Quarter: 2012Q4

REPORT INFORMATION
  Report Type: 
  Country: CA (occurrence: CA)
  Receive Date: 20090729
  Receipt Date: 20121111
  Transmission Date: 20130627
  Serious: Yes (Hospitalization, Other)
  Sender: FDA-Public Use
  Company Number: PHMT2007CA01729

PATIENT
  Sex: Female

DRUGS (16)
  1. SANDOSTATIN LAR [Suspect]
     Indication: NEUROENDOCRINE TUMOUR
     Dosage: 40 mg, TIW
     Route: 030
     Dates: start: 20000701
  2. SANDOSTATIN LAR [Suspect]
     Dosage: 40 mg, every 4 weeks
     Route: 030
  3. SANDOSTATIN LAR [Suspect]
     Dosage: 30 mg, every 4 weeks
     Route: 030
     Dates: end: 20090806
  4. SANDOSTATIN LAR [Suspect]
     Dosage: 30 mg, QMO
     Route: 030
     Dates: start: 20090806
  5. SANDOSTATIN LAR [Suspect]
     Dosage: 30 mg every 4 weeks
     Route: 030
  6. SANDOSTATIN LAR [Suspect]
     Dosage: 40 mg, every 3 weeks
     Route: 030
  7. PARIET [Concomitant]
  8. SERTRALINE [Concomitant]
  9. NADOLOL [Concomitant]
  10. ESTROGEN NOS [Concomitant]
  11. NORVASC [Concomitant]
  12. CHLORTHALIDONE [Concomitant]
  13. FUROSEMIDE [Concomitant]
  14. PANTOPRAZOLE [Concomitant]
  15. RADIATION THERAPY [Concomitant]
  16. DIURETICS [Concomitant]
     Dates: end: 20100630

REACTIONS (35)
  - Hepatic neoplasm [Unknown]
  - Post procedural complication [Unknown]
  - Malignant neoplasm progression [Unknown]
  - Rectal haemorrhage [Unknown]
  - Haemoglobin decreased [Unknown]
  - Pallor [Unknown]
  - Pericardial effusion [Unknown]
  - Diarrhoea [Not Recovered/Not Resolved]
  - Epistaxis [Unknown]
  - Depression [Not Recovered/Not Resolved]
  - Abdominal pain [Unknown]
  - Blood pressure decreased [Unknown]
  - Dyspnoea [Unknown]
  - Abdominal pain upper [Unknown]
  - Thyroid disorder [Not Recovered/Not Resolved]
  - Local swelling [Unknown]
  - Urinary retention [Not Recovered/Not Resolved]
  - Hypertension [Recovering/Resolving]
  - Fatigue [Unknown]
  - Asthenia [Unknown]
  - Arthralgia [Unknown]
  - Back pain [Recovering/Resolving]
  - Musculoskeletal chest pain [Recovering/Resolving]
  - Muscle spasms [Unknown]
  - Nausea [Unknown]
  - Constipation [Unknown]
  - Influenza like illness [Unknown]
  - Nasopharyngitis [Unknown]
  - Pain [Unknown]
  - Headache [Unknown]
  - Blood iron decreased [Unknown]
  - Flushing [Unknown]
  - Hepatic pain [Unknown]
  - Blood glucose increased [Unknown]
  - Hypoglycaemia [Unknown]
